FAERS Safety Report 8773950 (Version 2)
Quarter: 2012Q4

REPORT INFORMATION
  Report Type: 
  Country: CA (occurrence: CA)
  Receive Date: 20120910
  Receipt Date: 20121008
  Transmission Date: 20130627
  Serious: Yes (Life-Threatening, Other)
  Sender: FDA-Public Use
  Company Number: CA-ABBOTT-12P-163-0977310-00

PATIENT
  Age: 79 Year
  Sex: Male
  Weight: 68 kg

DRUGS (4)
  1. HUMIRA PRE-FILLED SYRINGE [Suspect]
     Indication: PRODUCT USED FOR UNKNOWN INDICATION
     Dates: start: 200803, end: 200808
  2. ENBREL [Suspect]
     Indication: PRODUCT USED FOR UNKNOWN INDICATION
     Dates: start: 200706, end: 201111
  3. STELARA [Concomitant]
     Indication: PRODUCT USED FOR UNKNOWN INDICATION
  4. UNKNOWN MEDICATION [Concomitant]
     Indication: PRODUCT USED FOR UNKNOWN INDICATION

REACTIONS (4)
  - Weight decreased [Not Recovered/Not Resolved]
  - Metastatic neoplasm [Unknown]
  - Abdominal pain [Not Recovered/Not Resolved]
  - Back pain [Not Recovered/Not Resolved]
